FAERS Safety Report 16600313 (Version 1)
Quarter: 2019Q3

REPORT INFORMATION
  Report Type: Spontaneous
  Country: NL (occurrence: FR)
  Receive Date: 20190719
  Receipt Date: 20190719
  Transmission Date: 20191004
  Serious: Yes (Disabling)
  Sender: FDA-Public Use
  Company Number: FR-FRESENIUS KABI-FK201907945

PATIENT
  Age: 35 Year
  Sex: Female
  Weight: 61 kg

DRUGS (5)
  1. LEVOFLOXACIN (MANUFACTURER UNKNOWN) [Suspect]
     Active Substance: LEVOFLOXACIN
     Indication: INFECTION
     Route: 041
     Dates: start: 20190427, end: 20190427
  2. FUROSEMIDE. [Suspect]
     Active Substance: FUROSEMIDE
     Indication: PRODUCT USED FOR UNKNOWN INDICATION
     Route: 041
     Dates: start: 201905, end: 201905
  3. TOBRAMYCIN SULFATE. [Suspect]
     Active Substance: TOBRAMYCIN SULFATE
     Indication: INFECTION
     Route: 041
     Dates: start: 20190513, end: 20190515
  4. GENTAMICIN. [Suspect]
     Active Substance: GENTAMICIN
     Indication: INFECTION
     Route: 041
     Dates: start: 20190426, end: 20190426
  5. VANCOMYCIN HYDROCHLORIDE. [Suspect]
     Active Substance: VANCOMYCIN HYDROCHLORIDE
     Indication: INFECTION
     Route: 041
     Dates: start: 20190508, end: 20190513

REACTIONS (1)
  - Deafness bilateral [Not Recovered/Not Resolved]

NARRATIVE: CASE EVENT DATE: 201905
